FAERS Safety Report 8757082 (Version 1)
Quarter: 2012Q4

REPORT INFORMATION
  Report Type: 
  Country: GB (occurrence: GB)
  Receive Date: 20120828
  Receipt Date: 20120828
  Transmission Date: 20130627
  Serious: Yes (Disabling)
  Sender: FDA-Public Use
  Company Number: GB-MYLANLABS-2012S1016769

PATIENT
  Age: 86 Year
  Sex: Female

DRUGS (4)
  1. CITALOPRAM [Suspect]
     Indication: DEPRESSED MOOD
     Route: 048
     Dates: start: 201203, end: 201204
  2. AMLODIPINE [Concomitant]
     Indication: PRODUCT USED FOR UNKNOWN INDICATION
     Route: 048
  3. MEBEVERINE [Concomitant]
     Indication: PRODUCT USED FOR UNKNOWN INDICATION
     Route: 048
  4. MEMANTINE [Concomitant]
     Indication: DEMENTIA
     Route: 048
     Dates: start: 201110

REACTIONS (3)
  - Fall [Recovered/Resolved]
  - Incoherent [Recovered/Resolved]
  - Sedation [Recovered/Resolved]
